FAERS Safety Report 9206525 (Version 1)
Quarter: 2013Q2

REPORT INFORMATION
  Report Type: Spontaneous
  Country: GB (occurrence: GB)
  Receive Date: 20130403
  Receipt Date: 20130403
  Transmission Date: 20140414
  Serious: Yes (Hospitalization)
  Sender: FDA-Public Use
  Company Number: GB-PFIZER INC-GBWYE011902SEP04

PATIENT
  Age: 71 Year
  Sex: Female

DRUGS (9)
  1. IBUPROFEN [Suspect]
     Dosage: 400 MG, 3X/DAY
     Route: 065
  2. ALENDRONIC ACID [Suspect]
     Indication: OSTEOPOROSIS
     Dosage: 10 MG, 1X/DAY
     Route: 048
     Dates: end: 20040807
  3. PREDNISOLONE [Suspect]
     Indication: RHEUMATOID ARTHRITIS
     Dosage: 10 MG, 1X/DAY
     Route: 048
     Dates: start: 2002
  4. FRUMIL [Concomitant]
     Indication: HYPERTENSION
     Dosage: 5/40 EVERY MORNING
     Route: 048
  5. ATENOLOL [Concomitant]
     Indication: HYPERTENSION
     Dosage: 50 MG, 1X/DAY
     Route: 048
     Dates: start: 2003
  6. CALCICHEW-D3 [Concomitant]
     Dosage: UNK
     Route: 048
     Dates: start: 2002
  7. PARACETAMOL [Concomitant]
     Indication: RHEUMATOID ARTHRITIS
     Dosage: 1 G, 4X/DAY
     Route: 048
  8. TRAMADOL [Concomitant]
     Indication: RHEUMATOID ARTHRITIS
     Dosage: 50-100 MG 4 TIMES DAILY
     Route: 048
  9. LEKOVIT CA [Concomitant]
     Indication: OSTEOPOROSIS

REACTIONS (4)
  - Helicobacter infection [Recovering/Resolving]
  - Melaena [Recovering/Resolving]
  - Haematemesis [Recovering/Resolving]
  - Gastric ulcer [Recovering/Resolving]
